FAERS Safety Report 4903657-1 (Version None)
Quarter: 2006Q1

REPORT INFORMATION
  Report Type: 
  Country: None (occurrence: None)
  Receive Date: 20060208
  Receipt Date: 20060109
  Transmission Date: 20060701
  Serious: Yes (Death, Hospitalization)
  Sender: FDA-Public Use
  Company Number: TH-SANOFI-SYNTHELABO-F01200600048

PATIENT
  Sex: Female

DRUGS (4)
  1. OXALIPLATIN [Suspect]
     Indication: COLON CANCER
     Route: 042
  2. CAPECITABINE [Suspect]
     Indication: COLON CANCER
     Dosage: DOSED BID FOR 14 DAYS FOLLOWED BY A WEEK OF REST
     Route: 048
  3. BEVACIZUMAB [Suspect]
     Indication: COLON CANCER
     Dosage: Q3W
     Route: 042
  4. ENALAPRIL [Concomitant]
     Dates: start: 20030101

REACTIONS (2)
  - BRONCHOSPASM [None]
  - DIARRHOEA [None]
